FAERS Safety Report 6465654-7 (Version None)
Quarter: 2009Q4

REPORT INFORMATION
  Report Type: 
  Country: None (occurrence: None)
  Receive Date: 20091124
  Receipt Date: 20091109
  Transmission Date: 20100525
  Serious: Yes (Hospitalization, Other)
  Sender: FDA-Public Use
  Company Number: AUR-APL-2009-01240

PATIENT
  Age: 28 Year
  Sex: Female

DRUGS (3)
  1. CITALOPRAM HYDROBROMIDE [Suspect]
     Indication: DEPRESSIVE SYMPTOM
     Dosage: 20MG -
  2. ETODOLAC [Suspect]
     Dosage: 400MG -
  3. DESOGESTREL AND ETHINYL ESTRADIOL [Suspect]
     Indication: MENSTRUATION IRREGULAR

REACTIONS (5)
  - CEREBRAL ISCHAEMIA [None]
  - CEREBRAL VASOCONSTRICTION [None]
  - FACIAL PALSY [None]
  - HEMIPARESIS [None]
  - HYPOAESTHESIA [None]
